FAERS Safety Report 10219835 (Version 1)
Quarter: 2014Q2

REPORT INFORMATION
  Report Type: Spontaneous
  Country: US (occurrence: US)
  Receive Date: 20140605
  Receipt Date: 20140605
  Transmission Date: 20141212
  Serious: No
  Sender: FDA-Public Use
  Company Number: US-009507513-1406USA001270

PATIENT
  Age: 40 Year
  Sex: Male
  Weight: 77.98 kg

DRUGS (1)
  1. CLARITIN [Suspect]
     Indication: SEASONAL ALLERGY
     Dosage: 1 DF, QD
     Dates: start: 20140525, end: 20140527

REACTIONS (1)
  - Drug ineffective [Not Recovered/Not Resolved]
